FAERS Safety Report 12933129 (Version 2)
Quarter: 2017Q3

REPORT INFORMATION
  Report Type: Spontaneous
  Country: JP (occurrence: JP)
  Receive Date: 20161111
  Receipt Date: 20170720
  Transmission Date: 20171127
  Serious: Yes (Death, Life-Threatening, Hospitalization, Other)
  Sender: FDA-Public Use
  Company Number: JP-TEVA-2016-JP-002540J

PATIENT
  Age: 80 Year
  Sex: Male
  Weight: 45 kg

DRUGS (134)
  1. MELPHALAN. [Suspect]
     Active Substance: MELPHALAN
     Indication: PLASMA CELL MYELOMA
     Dosage: 12 MILLIGRAM DAILY;
     Route: 048
     Dates: start: 20160517, end: 20160519
  2. REBAMIPIDE [Concomitant]
     Active Substance: REBAMIPIDE
     Indication: CHRONIC GASTRITIS
     Dosage: 300 MILLIGRAM DAILY;
     Route: 048
     Dates: end: 20160519
  3. OXYCODONE HYDROCHLORIDE. [Concomitant]
     Active Substance: OXYCODONE HYDROCHLORIDE
     Dosage: 40 MILLIGRAM DAILY;
     Route: 042
     Dates: start: 20160522
  4. ACICLOVIR [Concomitant]
     Active Substance: ACYCLOVIR
     Route: 048
     Dates: start: 20160624
  5. AMINO ACIDS NOS W/ELECTROLYTES NOS/GLUCOSE/VI [Concomitant]
     Indication: DECREASED APPETITE
     Dosage: 1000 ML DAILY;
     Route: 042
     Dates: start: 20160519, end: 20160622
  6. DORIPENEM. [Concomitant]
     Active Substance: DORIPENEM
     Dosage: 3 GRAM DAILY;
     Route: 042
     Dates: start: 20160705, end: 20160720
  7. OMEPRAZOLE. [Concomitant]
     Active Substance: OMEPRAZOLE
     Indication: PROPHYLAXIS
     Dosage: 40 MILLIGRAM DAILY;
     Route: 042
     Dates: start: 20160521, end: 20160525
  8. HEPARIN SODIUM. [Concomitant]
     Active Substance: HEPARIN SODIUM
     Indication: THROMBOSIS
     Route: 042
     Dates: start: 20160521, end: 20160521
  9. GLUCOSE [Concomitant]
     Active Substance: DEXTROSE
     Route: 042
     Dates: start: 20160607, end: 20160607
  10. METHYLPREDNISOLONE SODIUM SUCCINATE. [Concomitant]
     Active Substance: METHYLPREDNISOLONE SODIUM SUCCINATE
     Dosage: 125 MILLIGRAM DAILY;
     Route: 042
     Dates: start: 20160523, end: 20160525
  11. ISOTONIC SODIUM CHLORIDE SOLUTION [Concomitant]
     Active Substance: SODIUM CHLORIDE
     Indication: DECREASED APPETITE
     Route: 042
     Dates: start: 20160627
  12. ACETAMINOPHEN. [Concomitant]
     Active Substance: ACETAMINOPHEN
     Indication: PNEUMONIA
     Route: 045
     Dates: start: 20160705, end: 20160705
  13. PREGABALIN. [Concomitant]
     Active Substance: PREGABALIN
     Indication: SCIATICA
     Dosage: 150 MILLIGRAM DAILY;
     Route: 048
     Dates: end: 20160519
  14. SODIUM GUALENATE HYDRATE [Concomitant]
     Active Substance: SODIUM GUALENATE MONOHYDRATE
     Indication: PERIODONTAL DISEASE
     Route: 061
  15. L-CARBOCYSTEINE [Concomitant]
     Active Substance: CARBOCYSTEINE
     Indication: BRONCHITIS CHRONIC
     Dosage: 1500 MILLIGRAM DAILY;
     Route: 048
     Dates: start: 20160519
  16. DORIPENEM. [Concomitant]
     Active Substance: DORIPENEM
     Indication: PNEUMONIA
     Dosage: 1.5 GRAM DAILY;
     Route: 042
     Dates: start: 20160521, end: 20160529
  17. INSULIN HUMAN [Concomitant]
     Active Substance: INSULIN HUMAN
     Route: 042
     Dates: start: 20160618
  18. GLUCOSE [Concomitant]
     Active Substance: DEXTROSE
     Route: 042
     Dates: start: 20160613, end: 20160613
  19. HALOPERIDOL. [Concomitant]
     Active Substance: HALOPERIDOL
     Route: 042
     Dates: start: 20160630, end: 20160703
  20. PREDNISOLONE SODIUM SUCCINATE [Concomitant]
     Active Substance: PREDNISOLONE SODIUM SUCCINATE
     Dosage: 40 MILLIGRAM DAILY;
     Route: 042
     Dates: start: 20160601, end: 20160603
  21. PREDNISOLONE SODIUM SUCCINATE [Concomitant]
     Active Substance: PREDNISOLONE SODIUM SUCCINATE
     Dosage: 30 MILLIGRAM DAILY;
     Route: 042
     Dates: start: 20160716, end: 20160718
  22. RISPERIDONE. [Concomitant]
     Active Substance: RISPERIDONE
     Indication: DELIRIUM
     Dosage: 1 MILLIGRAM DAILY;
     Route: 048
     Dates: start: 20160602, end: 20160612
  23. ESOMEPRAZOLE MAGNESIUM. [Concomitant]
     Active Substance: ESOMEPRAZOLE MAGNESIUM
     Dosage: 20 MILLIGRAM DAILY;
     Route: 048
     Dates: start: 20160623
  24. DIAZEPAM. [Concomitant]
     Active Substance: DIAZEPAM
     Indication: SEDATION
     Route: 042
     Dates: start: 20160622, end: 20160622
  25. ACETAMINOPHEN. [Concomitant]
     Active Substance: ACETAMINOPHEN
     Indication: PRODUCT USED FOR UNKNOWN INDICATION
     Route: 042
     Dates: start: 20160622
  26. GLIMEPIRIDE. [Concomitant]
     Active Substance: GLIMEPIRIDE
     Dosage: 1 MILLIGRAM DAILY;
     Route: 048
     Dates: start: 20160623, end: 20160623
  27. OXYCODONE HYDROCHLORIDE. [Concomitant]
     Active Substance: OXYCODONE HYDROCHLORIDE
     Dosage: 20 MILLIGRAM DAILY;
     Route: 048
     Dates: start: 20160518, end: 20160519
  28. SULFAMETHOXAZOLE [Concomitant]
     Active Substance: SULFAMETHOXAZOLE
     Indication: OPPORTUNISTIC INFECTION
     Dosage: .4286 MILLIGRAM DAILY;
     Route: 048
     Dates: start: 20160517, end: 20160518
  29. SULFAMETHOXAZOLE [Concomitant]
     Active Substance: SULFAMETHOXAZOLE
     Dosage: 120 MILLIGRAM DAILY;
     Route: 048
     Dates: start: 20160606, end: 20160620
  30. TRIMETHOPRIM. [Concomitant]
     Active Substance: TRIMETHOPRIM
     Indication: OPPORTUNISTIC INFECTION
     Dosage: 34.2857 MILLIGRAM DAILY;
     Route: 048
     Dates: start: 20160517, end: 20160518
  31. OMEPRAZOLE. [Concomitant]
     Active Substance: OMEPRAZOLE
     Indication: HAEMATOCHEZIA
     Dosage: 40 MILLIGRAM DAILY;
     Route: 042
     Dates: start: 20160604, end: 20160605
  32. GLUCOSE [Concomitant]
     Active Substance: DEXTROSE
     Route: 042
     Dates: start: 20160610, end: 20160610
  33. HYDROXYZINE HYDROCHLORIDE. [Concomitant]
     Active Substance: HYDROXYZINE HYDROCHLORIDE
     Indication: DELIRIUM
     Route: 042
     Dates: start: 20160528, end: 20160530
  34. RAMELTEON [Concomitant]
     Active Substance: RAMELTEON
     Route: 045
     Dates: start: 20160630, end: 20160630
  35. METHYLPREDNISOLONE SODIUM SUCCINATE. [Concomitant]
     Active Substance: METHYLPREDNISOLONE SODIUM SUCCINATE
     Dosage: 250 MILLIGRAM DAILY;
     Route: 042
     Dates: start: 20160522, end: 20160522
  36. BISOPROLOL [Concomitant]
     Active Substance: BISOPROLOL
     Indication: SINUS TACHYCARDIA
     Dosage: 4 MILLIGRAM DAILY;
     Route: 061
     Dates: start: 20160522
  37. ESOMEPRAZOLE MAGNESIUM. [Concomitant]
     Active Substance: ESOMEPRAZOLE MAGNESIUM
     Indication: CHRONIC GASTRITIS
     Route: 048
     Dates: start: 20160615, end: 20160622
  38. DIAZEPAM. [Concomitant]
     Active Substance: DIAZEPAM
     Route: 042
     Dates: start: 20160701, end: 20160701
  39. NORADRENALIN [Concomitant]
     Active Substance: NOREPINEPHRINE\NOREPINEPHRINE BITARTRATE
     Indication: HYPOTENSION
     Route: 042
     Dates: start: 20160627, end: 20160627
  40. BIFIDOBACTERIUM NOS [Concomitant]
     Indication: CONSTIPATION
     Dosage: 3 GRAM DAILY;
     Route: 045
     Dates: start: 20160628, end: 20160701
  41. ACICLOVIR [Concomitant]
     Active Substance: ACYCLOVIR
     Indication: OPPORTUNISTIC INFECTION
     Dosage: 250 MILLIGRAM DAILY;
     Route: 042
     Dates: start: 20160520, end: 20160617
  42. PREDNISOLONE TABLETS 5MG. [Suspect]
     Active Substance: PREDNISOLONE
     Indication: PLASMA CELL MYELOMA
     Dosage: 80 MILLIGRAM DAILY;
     Route: 048
     Dates: start: 20160518, end: 20160519
  43. DARATUMUMAB [Suspect]
     Active Substance: DARATUMUMAB
     Indication: PLASMA CELL MYELOMA
     Dosage: 720 MILLIGRAM DAILY;
     Route: 042
     Dates: start: 20160517, end: 20160519
  44. AMBROXOL HYDROCHLORIDE [Concomitant]
     Active Substance: AMBROXOL HYDROCHLORIDE
     Indication: SPINAL COMPRESSION FRACTURE
     Dosage: 180 MILLIGRAM DAILY;
     Route: 048
     Dates: end: 20160519
  45. GLIMEPIRIDE. [Concomitant]
     Active Substance: GLIMEPIRIDE
     Dosage: 1 MILLIGRAM DAILY;
     Route: 048
     Dates: start: 20160622, end: 20160622
  46. CILOSTAZOL. [Concomitant]
     Active Substance: CILOSTAZOL
     Indication: SUPRAVENTRICULAR EXTRASYSTOLES
     Dosage: 10 MILLIGRAM DAILY;
     Route: 048
     Dates: end: 20160519
  47. TRAMADOL HYDROCHLORIDE. [Concomitant]
     Active Substance: TRAMADOL HYDROCHLORIDE
     Indication: SPINAL COMPRESSION FRACTURE
     Dosage: 100 MILLIGRAM DAILY;
     Route: 048
     Dates: end: 20160519
  48. DORIPENEM. [Concomitant]
     Active Substance: DORIPENEM
     Indication: INFECTION
     Dosage: 3 GRAM DAILY;
     Route: 042
     Dates: start: 20160519, end: 20160521
  49. GLUCOSE [Concomitant]
     Active Substance: DEXTROSE
     Indication: HYPOGLYCAEMIA
     Route: 042
     Dates: start: 20160527, end: 20160528
  50. HALOPERIDOL. [Concomitant]
     Active Substance: HALOPERIDOL
     Indication: DELIRIUM
     Dosage: 5 MILLIGRAM DAILY;
     Route: 042
     Dates: start: 20160524, end: 20160524
  51. PREDNISOLONE SODIUM SUCCINATE [Concomitant]
     Active Substance: PREDNISOLONE SODIUM SUCCINATE
     Dosage: 20 MILLIGRAM DAILY;
     Route: 042
     Dates: start: 20160607, end: 20160609
  52. PREDNISOLONE SODIUM SUCCINATE [Concomitant]
     Active Substance: PREDNISOLONE SODIUM SUCCINATE
     Dosage: 10 MILLIGRAM DAILY;
     Route: 042
     Dates: start: 20160610, end: 20160613
  53. RISPERIDONE. [Concomitant]
     Active Substance: RISPERIDONE
     Route: 048
     Dates: start: 20160613, end: 20160617
  54. RAMELTEON [Concomitant]
     Active Substance: RAMELTEON
     Indication: PRODUCT USED FOR UNKNOWN INDICATION
     Dosage: 8 MILLIGRAM DAILY;
     Route: 048
     Dates: start: 20160604, end: 20160621
  55. METHYLPREDNISOLONE SODIUM SUCCINATE. [Concomitant]
     Active Substance: METHYLPREDNISOLONE SODIUM SUCCINATE
     Indication: PRODUCT USED FOR UNKNOWN INDICATION
     Dosage: 500 MILLIGRAM DAILY;
     Route: 042
     Dates: start: 20160519, end: 20160619
  56. POTASSIUM CHLORIDE. [Concomitant]
     Active Substance: POTASSIUM CHLORIDE
     Indication: HYPOKALAEMIA
     Dosage: 2.4 GRAM DAILY;
     Route: 045
     Dates: start: 20160623
  57. MEPIVACAINE HYDROCHLORIDE. [Concomitant]
     Active Substance: MEPIVACAINE HYDROCHLORIDE
     Indication: LOCAL ANAESTHESIA
     Route: 061
     Dates: start: 20160627, end: 20160627
  58. MEPIVACAINE HYDROCHLORIDE. [Concomitant]
     Active Substance: MEPIVACAINE HYDROCHLORIDE
     Route: 061
     Dates: start: 20160706, end: 20160706
  59. RISPERIDONE. [Concomitant]
     Active Substance: RISPERIDONE
     Indication: PRODUCT USED FOR UNKNOWN INDICATION
     Route: 048
     Dates: start: 20160603, end: 20160603
  60. RISPERIDONE. [Concomitant]
     Active Substance: RISPERIDONE
     Route: 048
     Dates: start: 20160606, end: 20160609
  61. MECOBALAMIN [Concomitant]
     Active Substance: METHYLCOBALAMIN
     Indication: SCIATICA
     Dosage: 1500 MICROGRAM DAILY;
     Route: 048
     Dates: end: 20160519
  62. OXYCODONE HYDROCHLORIDE. [Concomitant]
     Active Substance: OXYCODONE HYDROCHLORIDE
     Dosage: 10 MILLIGRAM DAILY;
     Route: 048
     Dates: end: 20160517
  63. MAGNESIUM OXIDE. [Concomitant]
     Active Substance: MAGNESIUM OXIDE
     Dosage: 990 MILLIGRAM DAILY;
     Route: 048
     Dates: start: 20160626
  64. SENNOSIDE [Concomitant]
     Active Substance: SENNOSIDES
     Indication: CONSTIPATION
     Dosage: 24 MILLIGRAM DAILY;
     Route: 048
     Dates: start: 20160427, end: 20160519
  65. HEPARINOID [Concomitant]
     Active Substance: CHONDROITIN SULFATE (BOVINE)
     Indication: ECZEMA ASTEATOTIC
     Route: 065
     Dates: start: 20160514
  66. AMINO ACIDS NOS W/ELECTROLYTES NOS/GLUCOSE/VI [Concomitant]
     Dosage: 1500 ML DAILY;
     Route: 042
     Dates: start: 20160623, end: 20160626
  67. INSULIN HUMAN [Concomitant]
     Active Substance: INSULIN HUMAN
     Route: 042
     Dates: start: 20160712
  68. OMEPRAZOLE. [Concomitant]
     Active Substance: OMEPRAZOLE
     Indication: GASTRITIS
     Dosage: 20 MILLIGRAM DAILY;
     Route: 042
     Dates: start: 20160606, end: 20160614
  69. HEPARIN SODIUM. [Concomitant]
     Active Substance: HEPARIN SODIUM
     Dosage: 20000 IU (INTERNATIONAL UNIT) DAILY;
     Route: 042
     Dates: start: 20160522, end: 20160523
  70. FLURBIPROFEN AXETIL [Concomitant]
     Active Substance: FLURBIPROFEN AXETIL
     Indication: INTERVERTEBRAL DISC COMPRESSION
     Dosage: 50 MILLIGRAM DAILY;
     Route: 042
     Dates: start: 20160524, end: 20160525
  71. FLURBIPROFEN AXETIL [Concomitant]
     Active Substance: FLURBIPROFEN AXETIL
     Route: 042
     Dates: start: 20160705, end: 20160707
  72. PREDNISOLONE SODIUM SUCCINATE [Concomitant]
     Active Substance: PREDNISOLONE SODIUM SUCCINATE
     Dosage: 30 MILLIGRAM DAILY;
     Route: 042
     Dates: start: 20160604, end: 20160604
  73. PREDNISOLONE SODIUM SUCCINATE [Concomitant]
     Active Substance: PREDNISOLONE SODIUM SUCCINATE
     Dosage: 20 MILLIGRAM DAILY;
     Route: 042
     Dates: start: 20160628
  74. RISPERIDONE. [Concomitant]
     Active Substance: RISPERIDONE
     Route: 048
     Dates: start: 20160611, end: 20160616
  75. GLUCOSE W/SODIUM CHLORIDE [Concomitant]
     Indication: PRODUCT USED FOR UNKNOWN INDICATION
     Dosage: 1000 MILLIGRAM DAILY;
     Route: 042
     Dates: start: 20160521, end: 20160521
  76. SODIUM LACTATE. [Concomitant]
     Active Substance: SODIUM LACTATE
     Indication: SINUS TACHYCARDIA
     Dosage: 1000 MILLIGRAM DAILY;
     Route: 042
     Dates: start: 20160521, end: 20160521
  77. MIANSERIN HYDROCHLORIDE [Concomitant]
     Active Substance: MIANSERIN HYDROCHLORIDE
     Indication: DELIRIUM
     Dosage: 30 MILLIGRAM DAILY;
     Route: 048
     Dates: start: 20160617, end: 20160621
  78. MIANSERIN HYDROCHLORIDE [Concomitant]
     Active Substance: MIANSERIN HYDROCHLORIDE
     Route: 048
     Dates: start: 20160618, end: 20160622
  79. APIXABAN [Concomitant]
     Active Substance: APIXABAN
     Indication: SUPRAVENTRICULAR EXTRASYSTOLES
     Dosage: 10 MILLIGRAM DAILY;
     Route: 048
     Dates: start: 20160620, end: 20160622
  80. FUROSEMIDE. [Concomitant]
     Active Substance: FUROSEMIDE
     Indication: PLEURAL EFFUSION
     Route: 042
     Dates: start: 20160630, end: 20160630
  81. OXYCODONE HYDROCHLORIDE. [Concomitant]
     Active Substance: OXYCODONE HYDROCHLORIDE
     Indication: SPINAL COMPRESSION FRACTURE
     Dosage: 20 MILLIGRAM DAILY;
     Route: 042
     Dates: start: 20160520, end: 20160520
  82. GLIMEPIRIDE. [Concomitant]
     Active Substance: GLIMEPIRIDE
     Indication: TYPE 2 DIABETES MELLITUS
     Dosage: 1 MILLIGRAM DAILY;
     Route: 065
     Dates: end: 20160519
  83. SODIUM RABEPRAZOLE [Concomitant]
     Active Substance: RABEPRAZOLE SODIUM
     Indication: TYPE 2 DIABETES MELLITUS
     Dosage: 10 MILLIGRAM DAILY;
     Route: 048
     Dates: end: 20160519
  84. PROCHLORPERAZINE MESILATE [Concomitant]
     Indication: NAUSEA
     Dosage: 15 MILLIGRAM DAILY;
     Route: 048
     Dates: end: 20160519
  85. OXYCODONE HYDROCHLORIDE. [Concomitant]
     Active Substance: OXYCODONE HYDROCHLORIDE
     Dosage: 20 MILLIGRAM DAILY;
     Route: 042
     Dates: start: 20160520, end: 20160520
  86. METOCLOPRAMIDE. [Concomitant]
     Active Substance: METOCLOPRAMIDE
     Indication: NAUSEA
     Dosage: 5 MILLIGRAM DAILY;
     Route: 048
     Dates: start: 20160516, end: 20160519
  87. ZOLEDRONIC ACID [Concomitant]
     Active Substance: ZOLEDRONIC ACID
     Indication: BONE LESION
     Dosage: .1333 MILLIGRAM DAILY;
     Route: 042
     Dates: start: 20160516
  88. AMINO ACIDS NOS W/ELECTROLYTES NOS/GLUCOSE/VI [Concomitant]
     Dosage: 1000 ML DAILY;
     Route: 042
     Dates: start: 20160627
  89. MICAFUNGIN SODIUM [Concomitant]
     Active Substance: MICAFUNGIN SODIUM
     Indication: INFECTION
     Dosage: 50 MILLIGRAM DAILY;
     Route: 042
     Dates: start: 20160520
  90. INSULIN HUMAN [Concomitant]
     Active Substance: INSULIN HUMAN
     Indication: PRODUCT USED FOR UNKNOWN INDICATION
     Dosage: .5 ML DAILY;
     Route: 042
     Dates: start: 20160520, end: 20160528
  91. PREDNISOLONE SODIUM SUCCINATE [Concomitant]
     Active Substance: PREDNISOLONE SODIUM SUCCINATE
     Indication: ACUTE RESPIRATORY FAILURE
     Dosage: 1.6667 MILLIGRAM DAILY;
     Route: 042
     Dates: start: 20160529, end: 20160531
  92. PREDNISOLONE SODIUM SUCCINATE [Concomitant]
     Active Substance: PREDNISOLONE SODIUM SUCCINATE
     Dosage: 50 MILLIGRAM DAILY;
     Route: 042
     Dates: start: 20160706, end: 20160712
  93. RAMELTEON [Concomitant]
     Active Substance: RAMELTEON
     Route: 048
     Dates: start: 20160623
  94. DOPAMINE HYDROCHLORIDE. [Concomitant]
     Active Substance: DOPAMINE HYDROCHLORIDE
     Indication: SINUS TACHYCARDIA
     Dosage: 600 MILLIGRAM DAILY;
     Route: 042
     Dates: start: 20160522, end: 20160523
  95. METHYLPREDNISOLONE SODIUM SUCCINATE. [Concomitant]
     Active Substance: METHYLPREDNISOLONE SODIUM SUCCINATE
     Route: 042
     Dates: start: 20160622, end: 20160627
  96. BISOPROLOL [Concomitant]
     Active Substance: BISOPROLOL
     Indication: SUPRAVENTRICULAR EXTRASYSTOLES
     Route: 061
     Dates: start: 20160627
  97. PROPOFOL. [Concomitant]
     Active Substance: PROPOFOL
     Route: 042
     Dates: start: 20160622
  98. MIANSERIN HYDROCHLORIDE [Concomitant]
     Active Substance: MIANSERIN HYDROCHLORIDE
     Dosage: 30 MILLIGRAM DAILY;
     Route: 048
     Dates: start: 20160623
  99. MIANSERIN HYDROCHLORIDE [Concomitant]
     Active Substance: MIANSERIN HYDROCHLORIDE
     Dosage: 30 MILLIGRAM DAILY;
     Route: 048
     Dates: start: 20160630
  100. VELCADE [Suspect]
     Active Substance: BORTEZOMIB
     Indication: PLASMA CELL MYELOMA
     Dosage: 1.8 MILLIGRAM DAILY;
     Route: 058
     Dates: start: 20160517, end: 20160517
  101. OXYCODONE HYDROCHLORIDE. [Concomitant]
     Active Substance: OXYCODONE HYDROCHLORIDE
     Indication: SPINAL COMPRESSION FRACTURE
     Route: 048
     Dates: start: 20160427, end: 20160519
  102. ACICLOVIR [Concomitant]
     Active Substance: ACYCLOVIR
     Route: 048
     Dates: start: 20160618, end: 20160622
  103. TRIMETHOPRIM. [Concomitant]
     Active Substance: TRIMETHOPRIM
     Route: 048
     Dates: start: 20160606, end: 20160620
  104. INSULIN HUMAN [Concomitant]
     Active Substance: INSULIN HUMAN
     Dosage: .12 ML DAILY;
     Route: 042
     Dates: start: 20160616, end: 20160617
  105. GLUCOSE [Concomitant]
     Active Substance: DEXTROSE
     Route: 042
     Dates: start: 20160628
  106. PREDNISOLONE SODIUM SUCCINATE [Concomitant]
     Active Substance: PREDNISOLONE SODIUM SUCCINATE
     Dosage: 40 MILLIGRAM DAILY;
     Route: 042
     Dates: start: 20160713, end: 20160715
  107. PREDNISOLONE SODIUM SUCCINATE [Concomitant]
     Active Substance: PREDNISOLONE SODIUM SUCCINATE
     Dosage: 10 MILLIGRAM DAILY;
     Route: 042
     Dates: start: 20160719, end: 20160727
  108. RISPERIDONE. [Concomitant]
     Active Substance: RISPERIDONE
     Route: 048
     Dates: start: 20160618, end: 20160621
  109. GLYCERIN. [Concomitant]
     Active Substance: GLYCERIN
     Indication: CONSTIPATION
     Route: 061
     Dates: start: 20160621, end: 20160621
  110. ACETAMINOPHEN. [Concomitant]
     Active Substance: ACETAMINOPHEN
     Route: 045
     Dates: start: 20160705, end: 20160705
  111. OXYCODONE HYDROCHLORIDE. [Concomitant]
     Active Substance: OXYCODONE HYDROCHLORIDE
     Dosage: 40 MILLIGRAM DAILY;
     Route: 042
     Dates: start: 20160522
  112. OXYCODONE HYDROCHLORIDE. [Concomitant]
     Active Substance: OXYCODONE HYDROCHLORIDE
     Dosage: 20 MILLIGRAM DAILY;
     Route: 048
     Dates: start: 20160620, end: 20160622
  113. WHITE PETROLATUM [Concomitant]
     Active Substance: PETROLATUM
     Indication: ECZEMA ASTEATOTIC
     Route: 061
  114. MAGNESIUM OXIDE. [Concomitant]
     Active Substance: MAGNESIUM OXIDE
     Indication: CONSTIPATION
     Route: 048
     Dates: end: 20160519
  115. MAGNESIUM OXIDE. [Concomitant]
     Active Substance: MAGNESIUM OXIDE
     Dosage: 990 MILLIGRAM DAILY;
     Route: 048
     Dates: start: 20160621, end: 20160622
  116. ACICLOVIR [Concomitant]
     Active Substance: ACYCLOVIR
     Indication: OPPORTUNISTIC INFECTION
     Dosage: 200 MILLIGRAM DAILY;
     Route: 048
     Dates: start: 20160517, end: 20160519
  117. FAMOTIDINE. [Concomitant]
     Active Substance: FAMOTIDINE
     Indication: GASTRITIS
     Dosage: 20 MILLIGRAM DAILY;
     Route: 042
     Dates: start: 20160520, end: 20160520
  118. OMEPRAZOLE. [Concomitant]
     Active Substance: OMEPRAZOLE
     Indication: MUCOSAL ULCERATION
     Dosage: 60 MILLIGRAM DAILY;
     Route: 042
     Dates: start: 20160623, end: 20160623
  119. HALOPERIDOL. [Concomitant]
     Active Substance: HALOPERIDOL
     Route: 042
     Dates: start: 20160525, end: 20160527
  120. HALOPERIDOL. [Concomitant]
     Active Substance: HALOPERIDOL
     Route: 042
     Dates: start: 20160527, end: 20160604
  121. HALOPERIDOL. [Concomitant]
     Active Substance: HALOPERIDOL
     Route: 042
     Dates: start: 20160609, end: 20160609
  122. HALOPERIDOL. [Concomitant]
     Active Substance: HALOPERIDOL
     Route: 042
     Dates: start: 20160616
  123. PANTHENOL [Concomitant]
     Active Substance: PANTHENOL
     Indication: ILIUM FRACTURE
     Route: 042
     Dates: start: 20160527, end: 20160527
  124. PREDNISOLONE SODIUM SUCCINATE [Concomitant]
     Active Substance: PREDNISOLONE SODIUM SUCCINATE
     Dosage: 10 MILLIGRAM DAILY;
     Route: 042
     Dates: start: 20160728, end: 20160728
  125. ADENOSINE TRIPHOSPHATE, DISODIUM SALT [Concomitant]
     Indication: SINUS TACHYCARDIA
     Dosage: 10 MILLIGRAM DAILY;
     Route: 042
     Dates: start: 20160521, end: 20160521
  126. LANDIOLOL HYDROCHLORIDE [Concomitant]
     Active Substance: LANDIOLOL HYDROCHLORIDE
     Indication: SINUS TACHYCARDIA
     Dosage: 150 MILLIGRAM DAILY;
     Route: 042
     Dates: start: 20160521, end: 20160521
  127. METHYLPREDNISOLONE SODIUM SUCCINATE. [Concomitant]
     Active Substance: METHYLPREDNISOLONE SODIUM SUCCINATE
     Dosage: 250 MILLIGRAM DAILY;
     Route: 042
     Dates: start: 20160520, end: 20160521
  128. METHYLPREDNISOLONE SODIUM SUCCINATE. [Concomitant]
     Active Substance: METHYLPREDNISOLONE SODIUM SUCCINATE
     Dosage: 60 MILLIGRAM DAILY;
     Route: 042
     Dates: start: 20160526, end: 20160527
  129. PROPOFOL. [Concomitant]
     Active Substance: PROPOFOL
     Indication: SEDATION
     Dosage: 1000 MILLIGRAM DAILY;
     Route: 042
     Dates: start: 20160523, end: 20160524
  130. BISOPROLOL FUMARATE. [Concomitant]
     Active Substance: BISOPROLOL FUMARATE
     Indication: SUPRAVENTRICULAR EXTRASYSTOLES
     Route: 048
     Dates: start: 20160620, end: 20160622
  131. APIXABAN [Concomitant]
     Active Substance: APIXABAN
     Dosage: 2.5 MILLIGRAM DAILY;
     Route: 048
     Dates: start: 20160627
  132. ACETAMINOPHEN. [Concomitant]
     Active Substance: ACETAMINOPHEN
     Route: 042
     Dates: start: 20160701
  133. ACETAMINOPHEN. [Concomitant]
     Active Substance: ACETAMINOPHEN
     Route: 042
     Dates: start: 20160707, end: 20160719
  134. ACICLOVIR [Concomitant]
     Active Substance: ACYCLOVIR
     Dosage: 250 MILLIGRAM DAILY;
     Route: 042
     Dates: start: 20160623, end: 20160623

REACTIONS (19)
  - Spinal compression fracture [Unknown]
  - Hypoglycaemia [Unknown]
  - Pneumonia aspiration [Unknown]
  - Ilium fracture [Unknown]
  - Cardiac arrest [Recovered/Resolved]
  - Decreased appetite [Unknown]
  - Haematochezia [Unknown]
  - Bradycardia [Unknown]
  - Arrhythmia [Unknown]
  - Tumour lysis syndrome [Not Recovered/Not Resolved]
  - Pleural effusion [Unknown]
  - Gangrene [Unknown]
  - Hypokalaemia [Unknown]
  - Decubitus ulcer [Unknown]
  - Benign prostatic hyperplasia [Unknown]
  - Pneumonia [Recovered/Resolved]
  - Acute respiratory failure [Fatal]
  - Delirium [Unknown]
  - Sinus tachycardia [Unknown]

NARRATIVE: CASE EVENT DATE: 20160519
